FAERS Safety Report 19765964 (Version 1)
Quarter: 2021Q3

REPORT INFORMATION
  Report Type: Spontaneous
  Country: GB (occurrence: GB)
  Receive Date: 20210831
  Receipt Date: 20210831
  Transmission Date: 20211014
  Serious: Yes (Other)
  Sender: FDA-Public Use
  Company Number: GB-NEBO-PC007299

PATIENT
  Age: 35 Year
  Sex: Female
  Weight: 152 kg

DRUGS (1)
  1. MONOFER [Suspect]
     Active Substance: IRON ISOMALTOSIDE 1000
     Indication: ANAEMIA
     Route: 042
     Dates: start: 20210824, end: 20210824

REACTIONS (5)
  - Hypoacusis [Recovered/Resolved]
  - Chest pain [Recovered/Resolved]
  - Visual impairment [Recovered/Resolved]
  - Heart rate increased [Unknown]
  - Blood pressure increased [Unknown]

NARRATIVE: CASE EVENT DATE: 20210824
